FAERS Safety Report 9994947 (Version 1)
Quarter: 2014Q1

REPORT INFORMATION
  Report Type: Spontaneous
  Country: US (occurrence: None)
  Receive Date: 20140225
  Receipt Date: 20140225
  Transmission Date: 20141002
  Serious: Yes (Hospitalization)
  Sender: FDA-Public Use
  Company Number: 2013-318

PATIENT
  Age: 63 Year
  Sex: Female

DRUGS (2)
  1. PRIALT [Suspect]
     Indication: PAIN
     Dosage: UNK UG/HOUR, INTRATHECAL
     Route: 037
     Dates: start: 2013
  2. PRIALT [Suspect]
     Indication: BACK PAIN
     Dosage: UNK UG/HOUR, INTRATHECAL
     Route: 037
     Dates: start: 2013

REACTIONS (6)
  - Psychotic disorder [None]
  - Dementia [None]
  - Speech disorder [None]
  - Confusional state [None]
  - Aggression [None]
  - Mental impairment [None]
